FAERS Safety Report 17052055 (Version 8)
Quarter: 2020Q3

REPORT INFORMATION
  Report Type: Report from Study
  Country: US (occurrence: US)
  Receive Date: 20191120
  Receipt Date: 20200824
  Transmission Date: 20201102
  Serious: No
  Sender: FDA-Public Use
  Company Number: NVSC2019US041511

PATIENT
  Sex: Female

DRUGS (4)
  1. COSENTYX [Suspect]
     Active Substance: SECUKINUMAB
     Dosage: 300 MG, Q4W
     Route: 058
  2. COSENTYX [Suspect]
     Active Substance: SECUKINUMAB
     Dosage: 300 MG, QMO
     Route: 058
  3. COSENTYX [Suspect]
     Active Substance: SECUKINUMAB
     Indication: PSORIASIS
     Dosage: 300 MG, QW (WEEKS 0,1,2,3 AND 4, THEN Q4W THEREAFTER)
     Route: 058
     Dates: start: 20191025
  4. COSENTYX [Suspect]
     Active Substance: SECUKINUMAB
     Indication: PSORIASIS
     Dosage: 150 MG
     Route: 058

REACTIONS (17)
  - Drug ineffective [Not Recovered/Not Resolved]
  - Swelling [Unknown]
  - Cyst [Unknown]
  - Rash [Unknown]
  - Oropharyngeal pain [Unknown]
  - Feeling abnormal [Unknown]
  - Fatigue [Unknown]
  - Erythema [Unknown]
  - Eye discharge [Unknown]
  - Lethargy [Unknown]
  - Psoriasis [Not Recovered/Not Resolved]
  - Incorrect dose administered [Unknown]
  - Skin plaque [Unknown]
  - Somnolence [Unknown]
  - Illness [Unknown]
  - Alopecia [Unknown]
  - Product dose omission issue [Unknown]
